FAERS Safety Report 23318830 (Version 1)
Quarter: 2023Q4

REPORT INFORMATION
  Report Type: Spontaneous
  Country: US (occurrence: US)
  Receive Date: 20231220
  Receipt Date: 20231220
  Transmission Date: 20240109
  Serious: Yes (Other)
  Sender: FDA-Public Use
  Company Number: US-MLMSERVICE-20231205-4697614-1

PATIENT
  Age: 31 Year
  Sex: Male

DRUGS (2)
  1. TACROLIMUS [Suspect]
     Active Substance: TACROLIMUS
     Indication: Immunosuppressant drug therapy
  2. RITUXIMAB [Suspect]
     Active Substance: RITUXIMAB
     Indication: Post transplant lymphoproliferative disorder

REACTIONS (4)
  - Crohn^s disease [Recovering/Resolving]
  - Colitis ulcerative [Recovering/Resolving]
  - Epstein-Barr virus infection reactivation [Recovering/Resolving]
  - Colitis [Recovering/Resolving]
